FAERS Safety Report 15076500 (Version 6)
Quarter: 2019Q4

REPORT INFORMATION
  Report Type: Report from Study
  Country: US (occurrence: US)
  Receive Date: 20180627
  Receipt Date: 20191007
  Transmission Date: 20200122
  Serious: Yes (Other)
  Sender: FDA-Public Use
  Company Number: US-JNJFOC-20180400161

PATIENT
  Age: 65 Year
  Sex: Male
  Weight: 119 kg

DRUGS (67)
  1. IMBRUVICA [Suspect]
     Active Substance: IBRUTINIB
     Dosage: 140 MG, QD
     Route: 048
     Dates: start: 20180209
  2. AMLODIPINE BESYLATE. [Concomitant]
     Active Substance: AMLODIPINE BESYLATE
     Dosage: TAKING HALF A PILL NOW
     Route: 048
     Dates: start: 20180524
  3. AMLODIPINE BESYLATE. [Concomitant]
     Active Substance: AMLODIPINE BESYLATE
     Route: 048
     Dates: start: 20180607
  4. CHLORAMBUCIL [Concomitant]
     Active Substance: CHLORAMBUCIL
     Indication: LEUKAEMIA
     Dosage: TAKE 8 TABLETS DAY 1 AND DAY 15
     Route: 048
     Dates: start: 20180503
  5. LIPITOR [Concomitant]
     Active Substance: ATORVASTATIN CALCIUM
     Route: 048
     Dates: start: 20180510
  6. LIPITOR [Concomitant]
     Active Substance: ATORVASTATIN CALCIUM
     Route: 048
     Dates: start: 20180524
  7. OXYBUTYNIN CHLORIDE. [Concomitant]
     Active Substance: OXYBUTYNIN CHLORIDE
     Route: 048
     Dates: start: 20180531
  8. FUROSEMIDE. [Concomitant]
     Active Substance: FUROSEMIDE
     Dosage: 20 MG, AS DIRECTED
     Route: 048
     Dates: start: 20180510
  9. FUROSEMIDE. [Concomitant]
     Active Substance: FUROSEMIDE
     Dosage: 20 MG, AS DIRECTED
     Route: 048
     Dates: start: 20180517
  10. CHLORAMBUCIL [Concomitant]
     Active Substance: CHLORAMBUCIL
     Dosage: TAKE 8 TABLETS DAY 1 AND DAY 15
     Route: 048
     Dates: start: 20180517
  11. LIPITOR [Concomitant]
     Active Substance: ATORVASTATIN CALCIUM
     Route: 048
     Dates: start: 20180531
  12. PERCOCET [Concomitant]
     Active Substance: ACETAMINOPHEN\OXYCODONE HYDROCHLORIDE
     Dosage: 1 TABLET Q4-6H PRN
     Route: 048
     Dates: start: 20180517
  13. PERCOCET [Concomitant]
     Active Substance: ACETAMINOPHEN\OXYCODONE HYDROCHLORIDE
     Dosage: 1 TABLET Q4-6H PRN
     Route: 048
     Dates: start: 20180531
  14. LISINOPRIL. [Concomitant]
     Active Substance: LISINOPRIL
     Route: 048
     Dates: start: 20180531
  15. FENTANYL. [Concomitant]
     Active Substance: FENTANYL
     Dosage: 1 PATCH TOPICAL Q72H
     Route: 062
     Dates: start: 20180524
  16. VALACYCLOVIR HCL [Concomitant]
     Active Substance: VALACYCLOVIR HYDROCHLORIDE
     Route: 048
     Dates: start: 20180524
  17. OXYBUTYNIN CHLORIDE. [Concomitant]
     Active Substance: OXYBUTYNIN CHLORIDE
     Route: 048
     Dates: start: 20180503
  18. FUROSEMIDE. [Concomitant]
     Active Substance: FUROSEMIDE
     Dosage: 20 MG, AS DIRECTED
     Route: 048
     Dates: start: 20180607
  19. LIPITOR [Concomitant]
     Active Substance: ATORVASTATIN CALCIUM
     Route: 048
     Dates: start: 20180517
  20. LISINOPRIL. [Concomitant]
     Active Substance: LISINOPRIL
     Route: 048
     Dates: start: 20180517
  21. LISINOPRIL. [Concomitant]
     Active Substance: LISINOPRIL
     Route: 048
     Dates: start: 20180524
  22. IMBRUVICA [Suspect]
     Active Substance: IBRUTINIB
     Indication: CHRONIC LYMPHOCYTIC LEUKAEMIA
     Dosage: 420 MG, QD
     Route: 048
  23. IMBRUVICA [Suspect]
     Active Substance: IBRUTINIB
     Route: 065
     Dates: start: 201802, end: 201805
  24. XARELTO [Suspect]
     Active Substance: RIVAROXABAN
     Dosage: FILM-COATED TABLET
     Route: 048
     Dates: start: 20180503
  25. AMLODIPINE BESYLATE. [Concomitant]
     Active Substance: AMLODIPINE BESYLATE
     Dosage: TAKING HALF A PILL NOW
     Route: 048
     Dates: start: 20180517
  26. AMLODIPINE BESYLATE. [Concomitant]
     Active Substance: AMLODIPINE BESYLATE
     Dosage: TAKING HALF A PILL NOW
     Route: 048
     Dates: start: 20180531
  27. LIPITOR [Concomitant]
     Active Substance: ATORVASTATIN CALCIUM
     Route: 048
     Dates: start: 20180503
  28. LISINOPRIL. [Concomitant]
     Active Substance: LISINOPRIL
     Route: 048
     Dates: start: 20180510
  29. FENTANYL. [Concomitant]
     Active Substance: FENTANYL
     Dosage: 1 PATCH TOPICAL Q72H
     Route: 062
     Dates: start: 20180510
  30. FENTANYL. [Concomitant]
     Active Substance: FENTANYL
     Dosage: 1 PATCH TOPICAL Q72H
     Route: 062
     Dates: start: 20180607
  31. IMBRUVICA [Suspect]
     Active Substance: IBRUTINIB
     Route: 048
     Dates: start: 20180208, end: 20180504
  32. IMBRUVICA [Suspect]
     Active Substance: IBRUTINIB
     Route: 048
     Dates: start: 20180518
  33. IMBRUVICA [Suspect]
     Active Substance: IBRUTINIB
     Dosage: 420 MG, QD
     Route: 048
     Dates: start: 20180211, end: 20180522
  34. XARELTO [Suspect]
     Active Substance: RIVAROXABAN
     Dosage: FILM-COATED TABLET
     Route: 048
     Dates: start: 20180510
  35. XARELTO [Suspect]
     Active Substance: RIVAROXABAN
     Dosage: FILM-COATED TABLET
     Route: 048
     Dates: start: 20180524
  36. VALACYCLOVIR HCL [Concomitant]
     Active Substance: VALACYCLOVIR HYDROCHLORIDE
     Route: 048
     Dates: start: 20180510
  37. FUROSEMIDE. [Concomitant]
     Active Substance: FUROSEMIDE
     Dosage: 20 MG, AS DIRECTED
     Route: 048
     Dates: start: 20180524
  38. PERCOCET [Concomitant]
     Active Substance: ACETAMINOPHEN\OXYCODONE HYDROCHLORIDE
     Dosage: 1 TABLET Q4-6H PRN
     Route: 048
     Dates: start: 20180607
  39. LISINOPRIL. [Concomitant]
     Active Substance: LISINOPRIL
     Route: 048
     Dates: start: 20180607
  40. XARELTO [Suspect]
     Active Substance: RIVAROXABAN
     Indication: ATRIAL FIBRILLATION
     Dosage: FILM-COATED TABLET
     Route: 048
     Dates: start: 2008
  41. XARELTO [Suspect]
     Active Substance: RIVAROXABAN
     Dosage: FILM-COATED TABLET
     Route: 048
     Dates: start: 20180607
  42. XARELTO [Suspect]
     Active Substance: RIVAROXABAN
     Dosage: FILM-COATED TABLET
     Route: 048
     Dates: start: 2018
  43. OXYBUTYNIN CHLORIDE. [Concomitant]
     Active Substance: OXYBUTYNIN CHLORIDE
     Route: 048
     Dates: start: 20180517
  44. FUROSEMIDE. [Concomitant]
     Active Substance: FUROSEMIDE
     Dosage: 20 MG, AS DIRECTED
     Route: 048
     Dates: start: 20180503
  45. CHLORAMBUCIL [Concomitant]
     Active Substance: CHLORAMBUCIL
     Dosage: TAKE 8 TABLETS DAY 1 AND DAY 15
     Route: 048
     Dates: start: 20180524
  46. PERCOCET [Concomitant]
     Active Substance: ACETAMINOPHEN\OXYCODONE HYDROCHLORIDE
     Dosage: 1 TABLET Q4-6H PRN
     Route: 048
     Dates: start: 20180524
  47. FENTANYL. [Concomitant]
     Active Substance: FENTANYL
     Dosage: 1 PATCH TOPICAL Q72H
     Route: 062
     Dates: start: 20180517
  48. FENTANYL. [Concomitant]
     Active Substance: FENTANYL
     Dosage: 1 PATCH TOPICAL Q72H
     Route: 062
     Dates: start: 20180531
  49. XARELTO [Suspect]
     Active Substance: RIVAROXABAN
     Dosage: FILM-COATED TABLET
     Route: 048
     Dates: start: 20180517
  50. XARELTO [Suspect]
     Active Substance: RIVAROXABAN
     Dosage: FILM-COATED TABLET
     Route: 048
     Dates: start: 20180531
  51. VALACYCLOVIR HCL [Concomitant]
     Active Substance: VALACYCLOVIR HYDROCHLORIDE
     Route: 048
     Dates: start: 20140721, end: 20180503
  52. VALACYCLOVIR HCL [Concomitant]
     Active Substance: VALACYCLOVIR HYDROCHLORIDE
     Route: 048
     Dates: start: 20180517
  53. CHLORAMBUCIL [Concomitant]
     Active Substance: CHLORAMBUCIL
     Dosage: TAKE 8 TABLETS DAY 1 AND DAY 15
     Route: 048
     Dates: start: 20180531
  54. CHLORAMBUCIL [Concomitant]
     Active Substance: CHLORAMBUCIL
     Dosage: TAKE 8 TABLETS DAY 1 AND DAY 15
     Route: 048
     Dates: start: 20180607
  55. LISINOPRIL. [Concomitant]
     Active Substance: LISINOPRIL
     Dosage: 20 MG, AS DIRECTED
     Route: 048
     Dates: start: 20180503
  56. VALACYCLOVIR HCL [Concomitant]
     Active Substance: VALACYCLOVIR HYDROCHLORIDE
     Route: 048
     Dates: start: 20180607
  57. AMLODIPINE BESYLATE. [Concomitant]
     Active Substance: AMLODIPINE BESYLATE
     Dosage: TAKING HALF A PILL NOW
     Route: 048
     Dates: start: 20180503
  58. AMLODIPINE BESYLATE. [Concomitant]
     Active Substance: AMLODIPINE BESYLATE
     Dosage: TAKING HALF A PILL NOW
     Route: 048
     Dates: start: 20180510
  59. OXYBUTYNIN CHLORIDE. [Concomitant]
     Active Substance: OXYBUTYNIN CHLORIDE
     Route: 048
     Dates: start: 20180510
  60. OXYBUTYNIN CHLORIDE. [Concomitant]
     Active Substance: OXYBUTYNIN CHLORIDE
     Route: 048
     Dates: start: 20180524
  61. OXYBUTYNIN CHLORIDE. [Concomitant]
     Active Substance: OXYBUTYNIN CHLORIDE
     Route: 048
     Dates: start: 20180607
  62. FUROSEMIDE. [Concomitant]
     Active Substance: FUROSEMIDE
     Dosage: 20 MG, AS DIRECTED
     Route: 048
     Dates: start: 20180531
  63. CHLORAMBUCIL [Concomitant]
     Active Substance: CHLORAMBUCIL
     Dosage: TAKE 8 TABLETS DAY 1 AND DAY 15
     Route: 048
     Dates: start: 20180510
  64. LIPITOR [Concomitant]
     Active Substance: ATORVASTATIN CALCIUM
     Route: 048
     Dates: start: 20180607
  65. PERCOCET [Concomitant]
     Active Substance: ACETAMINOPHEN\OXYCODONE HYDROCHLORIDE
     Indication: PAIN
     Dosage: 1 TABLET Q4-6H PRN
     Route: 048
     Dates: start: 20180503
  66. PERCOCET [Concomitant]
     Active Substance: ACETAMINOPHEN\OXYCODONE HYDROCHLORIDE
     Dosage: 1 TABLET Q4-6H PRN
     Route: 048
     Dates: start: 20180510
  67. FENTANYL. [Concomitant]
     Active Substance: FENTANYL
     Dosage: 1 PATCH TOPICAL Q72H
     Route: 062
     Dates: start: 20180503

REACTIONS (16)
  - Cystitis haemorrhagic [Unknown]
  - Hernia [Recovered/Resolved]
  - Abdominal distension [Not Recovered/Not Resolved]
  - Incorrect dose administered [Unknown]
  - Peripheral swelling [Recovering/Resolving]
  - Dry skin [Recovering/Resolving]
  - Dyspnoea exertional [Not Recovered/Not Resolved]
  - Blood potassium decreased [Unknown]
  - Oral herpes [Recovered/Resolved]
  - Off label use [Unknown]
  - Endovenous ablation [Unknown]
  - Fatigue [Unknown]
  - Skin fissures [Recovering/Resolving]
  - Blood glucose increased [Unknown]
  - Joint swelling [Not Recovered/Not Resolved]
  - Epistaxis [Recovered/Resolved]

NARRATIVE: CASE EVENT DATE: 20180209
